FAERS Safety Report 5451115-0 (Version None)
Quarter: 2007Q3

REPORT INFORMATION
  Report Type: 
  Country: None (occurrence: None)
  Receive Date: 20070813
  Receipt Date: 20070228
  Transmission Date: 20080115
  Serious: No
  Sender: FDA-Public Use
  Company Number: 20073575

PATIENT
  Sex: Female

DRUGS (2)
  1. LIORESAL [Suspect]
     Indication: MUSCLE SPASTICITY
     Dosage: DAILY, INTRATHECAL
     Route: 037
  2. SODIUM CHLORIDE 0.9% [Concomitant]

REACTIONS (3)
  - HYPOTONIA [None]
  - OEDEMA PERIPHERAL [None]
  - PAIN [None]
